FAERS Safety Report 15696728 (Version 3)
Quarter: 2019Q1

REPORT INFORMATION
  Report Type: Spontaneous
  Country: US (occurrence: US)
  Receive Date: 20181206
  Receipt Date: 20190123
  Transmission Date: 20190417
  Serious: No
  Sender: FDA-Public Use
  Company Number: US-PFIZER INC-2018493125

PATIENT
  Age: 69 Year
  Sex: Female

DRUGS (3)
  1. EUCRISA [Suspect]
     Active Substance: CRISABOROLE
     Dosage: UNK, 2X/DAY
     Route: 061
     Dates: start: 20180110
  2. EUCRISA [Suspect]
     Active Substance: CRISABOROLE
     Dosage: 60 MG, 2X/DAY
     Dates: start: 20180809, end: 20181108
  3. EUCRISA [Suspect]
     Active Substance: CRISABOROLE
     Indication: DERMATITIS ATOPIC
     Dosage: UNK, 2X/DAY (APPLY A THIN LAYER TO AFFECTED AREAS TWICE A DAY)
     Dates: start: 201808

REACTIONS (1)
  - Drug ineffective [Unknown]
